FAERS Safety Report 6405127-0 (Version None)
Quarter: 2009Q4

REPORT INFORMATION
  Report Type: 
  Country: None (occurrence: None)
  Receive Date: 20091016
  Receipt Date: 20091016
  Transmission Date: 20100525
  Serious: Yes (Hospitalization)
  Sender: FDA-Public Use
  Company Number: None

PATIENT
  Age: 60 Year
  Sex: Female
  Weight: 46.2669 kg

DRUGS (2)
  1. CRESTOR [Suspect]
     Indication: BLOOD CHOLESTEROL INCREASED
     Dosage: CRESTOR 2.5MG DAILY ORAL
     Route: 048
     Dates: start: 20081110, end: 20081112
  2. CRESTOR [Suspect]
     Indication: CEREBROVASCULAR ACCIDENT
     Dosage: CRESTOR 2.5MG DAILY ORAL
     Route: 048
     Dates: start: 20081110, end: 20081112

REACTIONS (5)
  - ARTHRALGIA [None]
  - ASTHENIA [None]
  - DIZZINESS [None]
  - NAUSEA [None]
  - VOMITING [None]
